FAERS Safety Report 9485388 (Version 2)
Quarter: 2013Q3

REPORT INFORMATION
  Report Type: Report from Study
  Country: GB (occurrence: GB)
  Receive Date: 20130829
  Receipt Date: 20130903
  Transmission Date: 20140515
  Serious: Yes (Other)
  Sender: FDA-Public Use
  Company Number: GB-009507513-1308GBR011154

PATIENT
  Sex: Male

DRUGS (4)
  1. BOCEPREVIR [Suspect]
     Indication: HEPATITIS C
     Dosage: UNK
     Route: 048
  2. RIBAVIRIN [Suspect]
     Indication: HEPATITIS C
     Dosage: 600 UNITS UNSPECIFIED, AM
     Route: 048
  3. RIBAVIRIN [Suspect]
     Dosage: 400 UNITS UNSPECIFIED, PM
     Route: 048
  4. VIRAFERONPEG [Suspect]
     Indication: HEPATITIS C
     Dosage: 150 UNITS UNSPECIFIED

REACTIONS (5)
  - Jaundice [Unknown]
  - Hepatic cirrhosis [Unknown]
  - Ascites [Unknown]
  - Child-Pugh-Turcotte score increased [Unknown]
  - Haemophilia [Unknown]
